FAERS Safety Report 8314981-7 (Version None)
Quarter: 2012Q2

REPORT INFORMATION
  Report Type: 
  Country: None (occurrence: None)
  Receive Date: 20120426
  Receipt Date: 20120116
  Transmission Date: 20120825
  Serious: No
  Sender: FDA-Public Use
  Company Number: US-MUTUAL PHARMACEUTICAL COMPANY, INC.-CLCY20120011

PATIENT
  Sex: Male
  Weight: 177.06 kg

DRUGS (7)
  1. METOLAZONE [Concomitant]
     Indication: CARDIAC FAILURE CONGESTIVE
     Route: 048
  2. COLCRYS [Suspect]
     Indication: GOUT
     Route: 048
     Dates: start: 20090101
  3. CARVEDILOL [Concomitant]
     Indication: HYPERTENSION
     Route: 048
  4. LISINOPRIL [Concomitant]
     Indication: HYPERTENSION
     Route: 048
  5. NOVOLOG INSULIN 70/30 [Concomitant]
     Indication: DIABETES MELLITUS
     Route: 058
  6. LANTUS [Concomitant]
     Indication: DIABETES MELLITUS
     Route: 058
  7. FUROSEMIDE [Concomitant]
     Indication: CARDIAC FAILURE CONGESTIVE
     Route: 048

REACTIONS (1)
  - DRUG INEFFECTIVE [None]
